FAERS Safety Report 22187382 (Version 2)
Quarter: 2023Q2

REPORT INFORMATION
  Report Type: Spontaneous
  Country: US (occurrence: US)
  Receive Date: 20230407
  Receipt Date: 20230502
  Transmission Date: 20230722
  Serious: Yes (Other)
  Sender: FDA-Public Use
  Company Number: US-BEH-2023157274

PATIENT
  Age: 25 Year
  Sex: Male

DRUGS (12)
  1. IDELVION [Suspect]
     Active Substance: COAGULATION FACTOR IX RECOMBINANT HUMAN
     Indication: Factor IX deficiency
     Dosage: 3500 INTERNATIONAL UNIT, QW
     Route: 042
     Dates: start: 201910
  2. IDELVION [Suspect]
     Active Substance: COAGULATION FACTOR IX RECOMBINANT HUMAN
     Indication: Factor IX deficiency
     Dosage: 3500 INTERNATIONAL UNIT, QW
     Route: 042
     Dates: start: 201910
  3. IDELVION [Suspect]
     Active Substance: COAGULATION FACTOR IX RECOMBINANT HUMAN
     Indication: Haemorrhage
     Dosage: 3500 INTERNATIONAL UNIT, PRN
     Route: 042
     Dates: start: 201910
  4. IDELVION [Suspect]
     Active Substance: COAGULATION FACTOR IX RECOMBINANT HUMAN
     Indication: Haemorrhage
     Dosage: 3500 INTERNATIONAL UNIT, PRN
     Route: 042
     Dates: start: 201910
  5. IDELVION [Suspect]
     Active Substance: COAGULATION FACTOR IX RECOMBINANT HUMAN
     Dosage: 7000 INTERNATIONAL UNIT, QD
     Route: 065
     Dates: start: 20230323
  6. IDELVION [Suspect]
     Active Substance: COAGULATION FACTOR IX RECOMBINANT HUMAN
     Dosage: 7000 INTERNATIONAL UNIT, QD
     Route: 065
     Dates: start: 20230323
  7. IDELVION [Suspect]
     Active Substance: COAGULATION FACTOR IX RECOMBINANT HUMAN
     Dosage: 7000 INTERNATIONAL UNIT, QD
     Route: 065
     Dates: start: 20230326
  8. IDELVION [Suspect]
     Active Substance: COAGULATION FACTOR IX RECOMBINANT HUMAN
     Dosage: 7000 INTERNATIONAL UNIT, QD
     Route: 065
     Dates: start: 20230326
  9. IDELVION [Suspect]
     Active Substance: COAGULATION FACTOR IX RECOMBINANT HUMAN
     Dosage: 7000 INTERNATIONAL UNIT, PRN
     Route: 042
  10. IDELVION [Suspect]
     Active Substance: COAGULATION FACTOR IX RECOMBINANT HUMAN
     Dosage: 7000 INTERNATIONAL UNIT, PRN
     Route: 042
  11. IDELVION [Suspect]
     Active Substance: COAGULATION FACTOR IX RECOMBINANT HUMAN
     Dosage: 7000 INTERNATIONAL UNIT , 2 BACK TO BACK DOSES
     Route: 042
     Dates: start: 20230411
  12. IDELVION [Suspect]
     Active Substance: COAGULATION FACTOR IX RECOMBINANT HUMAN
     Dosage: 7000 INTERNATIONAL UNIT , 2 BACK TO BACK DOSES
     Route: 042
     Dates: start: 20230411

REACTIONS (3)
  - Haemarthrosis [Recovered/Resolved]
  - Haemarthrosis [Not Recovered/Not Resolved]
  - Intra-abdominal haemorrhage [Recovering/Resolving]

NARRATIVE: CASE EVENT DATE: 20230323
